FAERS Safety Report 6305446-2 (Version None)
Quarter: 2009Q3

REPORT INFORMATION
  Report Type: 
  Country: None (occurrence: None)
  Receive Date: 20090807
  Receipt Date: 20090722
  Transmission Date: 20100115
  Serious: Yes (Hospitalization, Other)
  Sender: FDA-Public Use
  Company Number: 2009S1013026

PATIENT
  Sex: Female

DRUGS (2)
  1. SERTRALINE HCL [Suspect]
     Indication: DRUG USE FOR UNKNOWN INDICATION
     Dosage: 100 MG;UNKNOWN;TRANSPLACENTAL;DAILY
     Route: 064
  2. CO DYDRAMOL (PARAMOL-118) [Concomitant]

REACTIONS (5)
  - CRYING [None]
  - DRUG WITHDRAWAL SYNDROME NEONATAL [None]
  - DYSKINESIA NEONATAL [None]
  - IRRITABILITY [None]
  - MATERNAL DRUGS AFFECTING FOETUS [None]
